FAERS Safety Report 9831515 (Version 2)
Quarter: 2014Q1

REPORT INFORMATION
  Report Type: Spontaneous
  Country: US (occurrence: US)
  Receive Date: 20140121
  Receipt Date: 20140121
  Transmission Date: 20141002
  Serious: Yes (Other)
  Sender: FDA-Public Use
  Company Number: US-BEH-2014039863

PATIENT
  Age: 13 Year
  Sex: Female

DRUGS (1)
  1. BERINERT P [Suspect]
     Indication: HEREDITARY ANGIOEDEMA
     Dosage: STARTED 04-APR-2013; 500 UNITS X 2
     Route: 042
     Dates: start: 20131228, end: 20131228

REACTIONS (4)
  - Swelling face [Recovering/Resolving]
  - Eyelid oedema [Recovering/Resolving]
  - Headache [Recovering/Resolving]
  - Decreased appetite [Recovering/Resolving]
